FAERS Safety Report 5957290-3 (Version None)
Quarter: 2008Q4

REPORT INFORMATION
  Report Type: 
  Country: None (occurrence: None)
  Receive Date: 20081114
  Receipt Date: 20081031
  Transmission Date: 20090506
  Serious: Yes (Other)
  Sender: FDA-Public Use
  Company Number: DE-ROSEMONTLT-UKRP0002577 - 31-OCT-2008

PATIENT
  Age: 54 Year
  Sex: Female
  Weight: 104 kg

DRUGS (1)
  1. TAMOXIFEN CITRATE [Suspect]
     Indication: BREAST CANCER
     Dosage: 10 MG TIMES PR. 1. DAY

REACTIONS (8)
  - ADHESION [None]
  - ENDOMETRIOSIS [None]
  - OVARIAN CYST [None]
  - PELVIC MASS [None]
  - POLYP [None]
  - PROGESTERONE DECREASED [None]
  - SALPINGITIS [None]
  - UTERINE LEIOMYOMA [None]
